FAERS Safety Report 9790578 (Version 3)
Quarter: 2014Q1

REPORT INFORMATION
  Report Type: Spontaneous
  Country: FR (occurrence: FR)
  Receive Date: 20131231
  Receipt Date: 20140110
  Transmission Date: 20141002
  Serious: Yes (Death, Hospitalization, Other)
  Sender: FDA-Public Use
  Company Number: FR-JNJFOC-20131217708

PATIENT
  Age: 32 Year
  Sex: Male

DRUGS (5)
  1. REMICADE [Suspect]
     Indication: PRODUCT USED FOR UNKNOWN INDICATION
     Route: 042
     Dates: start: 20130610
  2. REMICADE [Suspect]
     Indication: PRODUCT USED FOR UNKNOWN INDICATION
     Route: 042
     Dates: start: 20130708
  3. REMICADE [Suspect]
     Indication: PRODUCT USED FOR UNKNOWN INDICATION
     Route: 042
     Dates: end: 20130822
  4. REMICADE [Suspect]
     Indication: PRODUCT USED FOR UNKNOWN INDICATION
     Route: 042
     Dates: start: 20130429
  5. REMICADE [Suspect]
     Indication: PRODUCT USED FOR UNKNOWN INDICATION
     Route: 042
     Dates: start: 20130415

REACTIONS (10)
  - Death [Fatal]
  - Disseminated tuberculosis [Fatal]
  - Hyponatraemia [Unknown]
  - Sepsis [Unknown]
  - Haematuria [Unknown]
  - Proteinuria [Unknown]
  - Pulmonary sepsis [Unknown]
  - Shock [Unknown]
  - Pneumocystis jirovecii pneumonia [Unknown]
  - Pneumothorax [Unknown]
